FAERS Safety Report 6221970-5 (Version None)
Quarter: 2009Q2

REPORT INFORMATION
  Report Type: 
  Country: None (occurrence: None)
  Receive Date: 20090608
  Receipt Date: 20090608
  Transmission Date: 20091009
  Serious: Yes (Hospitalization)
  Sender: FDA-Public Use
  Company Number: None

PATIENT
  Age: 66 Year
  Sex: Male

DRUGS (2)
  1. IXABEPILONE [Suspect]
     Indication: PANCREATIC CARCINOMA
     Dosage: 33 MG
     Dates: start: 20090415, end: 20090527
  2. SUNITINIB [Suspect]
     Dosage: 37.5 MG
     Dates: start: 20090415, end: 20090527

REACTIONS (2)
  - HAEMATOCHEZIA [None]
  - HAEMOGLOBIN DECREASED [None]
